FAERS Safety Report 13976407 (Version 3)
Quarter: 2017Q4

REPORT INFORMATION
  Report Type: Report from Study
  Country: CN (occurrence: CN)
  Receive Date: 20170915
  Receipt Date: 20171005
  Transmission Date: 20180321
  Serious: Yes (Hospitalization)
  Sender: FDA-Public Use
  Company Number: CN-ROCHE-1992244

PATIENT
  Age: 60 Year
  Sex: Female
  Weight: 60 kg

DRUGS (3)
  1. CARBOPLATIN. [Suspect]
     Active Substance: CARBOPLATIN
     Indication: SMALL CELL LUNG CANCER EXTENSIVE STAGE
     Dosage: ACHIEVE AN INITIAL TARGET AUC OF 5 MG/ML/MIN WILL BE ADMINISTERED??DATE OF MOST RECENT DOSE OF STUDY
     Route: 042
     Dates: start: 20170904
  2. ETOPOSIDE. [Suspect]
     Active Substance: ETOPOSIDE
     Indication: SMALL CELL LUNG CANCER EXTENSIVE STAGE
     Dosage: DATE OF MOST RECENT DOSE (157MG) OF STUDY DRUG PRIOR TO EVENT ONSET: 06/SEP/2017
     Route: 042
     Dates: start: 20170904
  3. ATEZOLIZUMAB. [Suspect]
     Active Substance: ATEZOLIZUMAB
     Indication: SMALL CELL LUNG CANCER EXTENSIVE STAGE
     Dosage: DATE OF MOST RECENT DOSE OF STUDY DRUG PRIOR TO EVENT ONSET: 04/SEP/2017, 11:40
     Route: 042
     Dates: start: 20170904

REACTIONS (1)
  - Electrolyte imbalance [Recovered/Resolved]

NARRATIVE: CASE EVENT DATE: 20170910
